FAERS Safety Report 4668544-5 (Version None)
Quarter: 2005Q2

REPORT INFORMATION
  Report Type: 
  Country: None (occurrence: None)
  Receive Date: 20050518
  Receipt Date: 20050428
  Transmission Date: 20051028
  Serious: No
  Sender: FDA-Public Use
  Company Number: B0379933A

PATIENT
  Age: 32 Year
  Sex: Female

DRUGS (2)
  1. AUGMENTIN '250' [Suspect]
     Indication: ACUTE SINUSITIS
     Dosage: 1 GRAM (S) / TWICE PER DAY / ORAL
     Route: 048
     Dates: start: 20050218, end: 20050223
  2. MULTIVITAMINS + MINERALS [Concomitant]

REACTIONS (7)
  - CAESAREAN SECTION [None]
  - CHOLESTASIS [None]
  - DRUG EXPOSURE DURING PREGNANCY [None]
  - GENITAL PRURITUS FEMALE [None]
  - JAUNDICE [None]
  - PRURITUS [None]
  - URINARY TRACT INFECTION [None]
